FAERS Safety Report 9366796 (Version 2)
Quarter: 2013Q2

REPORT INFORMATION
  Report Type: Spontaneous
  Country: ES (occurrence: ES)
  Receive Date: 20130625
  Receipt Date: 20130625
  Transmission Date: 20140414
  Serious: Yes (Other)
  Sender: FDA-Public Use
  Company Number: ES-TEVA-2011005515

PATIENT
  Age: 56 Year
  Sex: Female

DRUGS (3)
  1. ACTIQ [Suspect]
     Indication: BACK PAIN
     Route: 048
     Dates: start: 20080818
  2. ACTIQ [Suspect]
     Route: 048
     Dates: start: 200901
  3. ACTIQ [Suspect]
     Route: 048
     Dates: start: 20101103

REACTIONS (3)
  - Drug abuse [Recovered/Resolved]
  - Drug dependence [Recovered/Resolved]
  - Off label use [Recovered/Resolved]
